FAERS Safety Report 16451142 (Version 1)
Quarter: 2019Q2

REPORT INFORMATION
  Report Type: Spontaneous
  Country: US (occurrence: US)
  Receive Date: 20190619
  Receipt Date: 20190619
  Transmission Date: 20190711
  Serious: No
  Sender: FDA-Public Use
  Company Number: US-PFIZER INC-2019258106

PATIENT
  Age: 74 Year
  Sex: Female
  Weight: 107.5 kg

DRUGS (2)
  1. TOVIAZ [Suspect]
     Active Substance: FESOTERODINE FUMARATE
     Dosage: 8 MG, 1X/DAY (1 TABLET BY MOUTH IN THE MORNING)
     Route: 048
  2. TOVIAZ [Suspect]
     Active Substance: FESOTERODINE FUMARATE
     Indication: INCONTINENCE
     Dosage: 4 MG, 1X/DAY (1 TABLET BY MOUTH IN THE EVENING)
     Route: 048

REACTIONS (2)
  - Urinary tract infection [Recovering/Resolving]
  - Diarrhoea [Recovering/Resolving]

NARRATIVE: CASE EVENT DATE: 201905
